FAERS Safety Report 4364518-2 (Version None)
Quarter: 2004Q2

REPORT INFORMATION
  Report Type: 
  Country: None (occurrence: None)
  Receive Date: 20040519
  Receipt Date: 20030320
  Transmission Date: 20050107
  Serious: Yes (Hospitalization)
  Sender: FDA-Public Use
  Company Number: 03-0037

PATIENT
  Age: 40 Year
  Sex: Female

DRUGS (1)
  1. ROBINUL [Suspect]
     Dosage: PO
     Route: 048

REACTIONS (1)
  - URTICARIA [None]
